FAERS Safety Report 18479652 (Version 2)
Quarter: 2022Q3

REPORT INFORMATION
  Report Type: Spontaneous
  Country: CA (occurrence: CA)
  Receive Date: 20201109
  Receipt Date: 20220714
  Transmission Date: 20221027
  Serious: Yes (Other)
  Sender: FDA-Public Use
  Company Number: CA-GLAXOSMITHKLINE-CA2020218427

PATIENT

DRUGS (1)
  1. NICOTINE [Suspect]
     Active Substance: NICOTINE
     Dosage: UNK UNK, QD
     Dates: start: 2010

REACTIONS (6)
  - Vesical fistula [Unknown]
  - Muscular weakness [Unknown]
  - Ill-defined disorder [Unknown]
  - Mental disorder [Unknown]
  - Product use issue [Unknown]
  - Intentional product misuse [Unknown]
